FAERS Safety Report 5423870-7 (Version None)
Quarter: 2007Q3

REPORT INFORMATION
  Report Type: 
  Country: None (occurrence: None)
  Receive Date: 20070823
  Receipt Date: 20070813
  Transmission Date: 20080115
  Serious: Yes (Other)
  Sender: FDA-Public Use
  Company Number: GB-ROCHE-506990

PATIENT
  Age: 52 Year
  Sex: Female
  Weight: 95.3 kg

DRUGS (2)
  1. XENICAL [Suspect]
     Indication: OBESITY
     Route: 048
     Dates: start: 20070111, end: 20070725
  2. DICLOFENAC [Concomitant]
     Route: 048
     Dates: start: 20070614

REACTIONS (1)
  - RECTAL HAEMORRHAGE [None]
